FAERS Safety Report 14331821 (Version 1)
Quarter: 2017Q4

REPORT INFORMATION
  Report Type: Spontaneous
  Country: US (occurrence: US)
  Receive Date: 20171228
  Receipt Date: 20171228
  Transmission Date: 20180321
  Serious: No
  Sender: FDA-Public Use
  Company Number: US-SUN PHARMACEUTICAL INDUSTRIES LTD-2017US-155258

PATIENT
  Sex: Male

DRUGS (1)
  1. IMATINIB [Suspect]
     Active Substance: IMATINIB
     Indication: CHEMOTHERAPY
     Dosage: 1 DF, DAILY
     Route: 065
     Dates: start: 2017

REACTIONS (2)
  - Product solubility abnormal [Unknown]
  - Medication residue present [Unknown]

NARRATIVE: CASE EVENT DATE: 2017
